FAERS Safety Report 19619966 (Version 1)
Quarter: 2021Q3

REPORT INFORMATION
  Report Type: Spontaneous
  Country: US (occurrence: US)
  Receive Date: 20210726
  Receipt Date: 20210726
  Transmission Date: 20211014
  Serious: Yes (Life-Threatening)
  Sender: FDA-Public Use
  Company Number: None

PATIENT
  Age: 82 Year
  Sex: Female
  Weight: 89.36 kg

DRUGS (1)
  1. REGEN?COV [Suspect]
     Active Substance: CASIRIVIMAB\IMDEVIMAB
     Indication: COVID-19
     Dosage: ?          OTHER DOSE:600/60;?
     Route: 042
     Dates: start: 20210721, end: 20210721

REACTIONS (3)
  - Chest pain [None]
  - Dyspnoea [None]
  - Respiratory distress [None]

NARRATIVE: CASE EVENT DATE: 20210721
